FAERS Safety Report 17386663 (Version 2)
Quarter: 2020Q2

REPORT INFORMATION
  Report Type: Spontaneous
  Country: US (occurrence: US)
  Receive Date: 20200206
  Receipt Date: 20200508
  Transmission Date: 20200713
  Serious: Yes (Hospitalization, Other)
  Sender: FDA-Public Use
  Company Number: US-ASTRAZENECA-2020SE16087

PATIENT
  Age: 55 Year
  Sex: Female
  Weight: 69.9 kg

DRUGS (6)
  1. ESOMEPRAZOLE MAGNESIUM. [Suspect]
     Active Substance: ESOMEPRAZOLE MAGNESIUM
     Indication: GASTROOESOPHAGEAL REFLUX DISEASE
     Dosage: 20 MG TWO TIMES A DAY (GENERIC)
     Route: 048
  2. ESOMEPRAZOLE MAGNESIUM. [Suspect]
     Active Substance: ESOMEPRAZOLE MAGNESIUM
     Indication: GASTROOESOPHAGEAL REFLUX DISEASE
     Dosage: 40 MG TWO TIMES A DAY
     Route: 048
     Dates: start: 201903, end: 20200114
  3. DILTIAZEM. [Concomitant]
     Active Substance: DILTIAZEM
  4. OMEPRAZOLE. [Suspect]
     Active Substance: OMEPRAZOLE
     Route: 048
     Dates: start: 201909, end: 202001
  5. FLECAINIDE [Concomitant]
     Active Substance: FLECAINIDE
  6. ESOMEPRAZOLE MAGNESIUM. [Suspect]
     Active Substance: ESOMEPRAZOLE MAGNESIUM
     Indication: GASTROOESOPHAGEAL REFLUX DISEASE
     Dosage: TWICE DAILY
     Route: 048

REACTIONS (10)
  - Migraine [Recovering/Resolving]
  - Depression [Recovering/Resolving]
  - Incorrect dose administered [Unknown]
  - Cerebrovascular accident [Unknown]
  - Panic attack [Recovering/Resolving]
  - Urinary tract infection [Unknown]
  - Bladder disorder [Recovering/Resolving]
  - Anxiety [Recovering/Resolving]
  - Abdominal pain [Unknown]
  - Dyspnoea [Unknown]
